FAERS Safety Report 14741926 (Version 1)
Quarter: 2018Q2

REPORT INFORMATION
  Report Type: Spontaneous
  Country: PL (occurrence: PL)
  Receive Date: 20180410
  Receipt Date: 20180410
  Transmission Date: 20180711
  Serious: Yes (Life-Threatening, Hospitalization, Other)
  Sender: FDA-Public Use
  Company Number: PL-ROCHE-2099024

PATIENT
  Age: 58 Year
  Sex: Female

DRUGS (6)
  1. ENVARSUS XR [Suspect]
     Active Substance: TACROLIMUS
     Indication: RENAL TRANSPLANT
     Route: 065
  2. TACROLIMUS. [Suspect]
     Active Substance: TACROLIMUS
     Indication: IMMUNOSUPPRESSANT DRUG THERAPY
     Route: 065
  3. TACROLIMUS. [Suspect]
     Active Substance: TACROLIMUS
     Indication: RENAL TRANSPLANT
     Route: 065
  4. SIMULECT [Suspect]
     Active Substance: BASILIXIMAB
     Indication: IMMUNOSUPPRESSANT DRUG THERAPY
  5. MYCOPHENOLATE MOFETIL. [Suspect]
     Active Substance: MYCOPHENOLATE MOFETIL
     Indication: RENAL TRANSPLANT
     Dosage: UNK
     Route: 065
  6. SIMULECT [Suspect]
     Active Substance: BASILIXIMAB
     Indication: IMMUNE TOLERANCE INDUCTION
     Route: 065

REACTIONS (19)
  - Pneumonitis [Recovering/Resolving]
  - Anaemia [Unknown]
  - Asthenia [Unknown]
  - Acute coronary syndrome [Unknown]
  - Complications of transplanted kidney [Recovering/Resolving]
  - Acid base balance abnormal [Recovering/Resolving]
  - Inflammation [Recovering/Resolving]
  - Immunosuppressant drug level increased [Unknown]
  - Cardiac arrest [Recovered/Resolved]
  - Hypotension [Recovering/Resolving]
  - Dyspnoea [Unknown]
  - Peripheral swelling [Unknown]
  - Myocardial infarction [Recovered/Resolved]
  - Arrhythmia [Unknown]
  - Cardiac failure [Recovering/Resolving]
  - Hypotonia [Unknown]
  - Cardiogenic shock [Recovering/Resolving]
  - Haematoma [Recovering/Resolving]
  - Electrolyte imbalance [Recovering/Resolving]
